FAERS Safety Report 9964188 (Version 1)
Quarter: 2014Q1

REPORT INFORMATION
  Report Type: Spontaneous
  Country: TR (occurrence: TR)
  Receive Date: 20140305
  Receipt Date: 20140305
  Transmission Date: 20141002
  Serious: Yes (Other)
  Sender: FDA-Public Use
  Company Number: TR-JNJFOC-20140216258

PATIENT
  Age: 43 Year
  Sex: Female

DRUGS (1)
  1. INFLIXIMAB, RECOMBINANT [Suspect]
     Indication: ANKYLOSING SPONDYLITIS
     Dosage: WAS INITIATED ON 0,2,6 AND EVERY OTHER 6 WEEKS.
     Route: 042

REACTIONS (1)
  - Lupus-like syndrome [Recovering/Resolving]
